FAERS Safety Report 7390503-2 (Version None)
Quarter: 2011Q2

REPORT INFORMATION
  Report Type: 
  Country: None (occurrence: None)
  Receive Date: 20110402
  Receipt Date: 20110321
  Transmission Date: 20111010
  Serious: Yes (Hospitalization, Other)
  Sender: FDA-Public Use
  Company Number: US-ELI_LILLY_AND_COMPANY-US201103005740

PATIENT
  Sex: Female

DRUGS (2)
  1. FORTEO [Suspect]
     Indication: OSTEOPOROSIS
     Dosage: 20 UG, QD
     Dates: start: 20100101
  2. FORTEO [Suspect]
     Dosage: 20 UG, QD
     Dates: start: 20110302

REACTIONS (3)
  - HOSPITALISATION [None]
  - DRUG DOSE OMISSION [None]
  - SURGERY [None]
